FAERS Safety Report 9338716 (Version 1)
Quarter: 2013Q2

REPORT INFORMATION
  Report Type: Spontaneous
  Country: US (occurrence: None)
  Receive Date: 20130605
  Receipt Date: 20130605
  Transmission Date: 20140414
  Serious: No
  Sender: FDA-Public Use
  Company Number: None

PATIENT
  Age: 6 Year
  Sex: Female

DRUGS (1)
  1. VEREGEN [Suspect]
     Indication: MOLLUSCUM CONTAGIOSUM
     Dates: start: 20121101, end: 20121105

REACTIONS (1)
  - Inflammation [None]
